FAERS Safety Report 10816651 (Version 1)
Quarter: 2015Q1

REPORT INFORMATION
  Report Type: Spontaneous
  Country: US (occurrence: US)
  Receive Date: 20150218
  Receipt Date: 20150218
  Transmission Date: 20150721
  Serious: Yes (Hospitalization, Disabling, Congenital Anomaly, Other)
  Sender: FDA-Public Use
  Company Number: US-APOTEX-2015AP006512

PATIENT
  Sex: Male
  Weight: 1.6 kg

DRUGS (9)
  1. PAXIL CR [Suspect]
     Active Substance: PAROXETINE HYDROCHLORIDE
     Indication: PRODUCT USED FOR UNKNOWN INDICATION
     Dosage: 2.5 10MG TABS DAILY
     Route: 064
  2. SYNTHROID [Concomitant]
     Active Substance: LEVOTHYROXINE SODIUM
     Indication: PRODUCT USED FOR UNKNOWN INDICATION
     Dosage: UNK
     Route: 064
     Dates: start: 1994
  3. SUDAFED [Concomitant]
     Active Substance: PSEUDOEPHEDRINE HYDROCHLORIDE
     Indication: PRODUCT USED FOR UNKNOWN INDICATION
     Route: 064
  4. PAXIL [Suspect]
     Active Substance: PAROXETINE HYDROCHLORIDE
     Indication: PRODUCT USED FOR UNKNOWN INDICATION
     Route: 064
  5. ZOLOFT [Concomitant]
     Active Substance: SERTRALINE HYDROCHLORIDE
     Indication: PRODUCT USED FOR UNKNOWN INDICATION
     Dosage: UNK
     Route: 064
     Dates: start: 200509
  6. PAROXETINE HYDROCHLORIDE. [Suspect]
     Active Substance: PAROXETINE HYDROCHLORIDE
     Indication: PRODUCT USED FOR UNKNOWN INDICATION
     Dosage: UNK
     Route: 064
  7. PRENATAL VITAMINS                  /07426201/ [Concomitant]
     Active Substance: ASCORBIC ACID\BIOTIN\MINERALS\NIACIN\RETINOL\TOCOPHEROL\VITAMIN B\VITAMIN D
     Dosage: UNK
     Route: 064
     Dates: start: 200508
  8. CITALOPRAM [Concomitant]
     Active Substance: CITALOPRAM HYDROBROMIDE
     Indication: PRODUCT USED FOR UNKNOWN INDICATION
     Route: 064
  9. CELEXA [Concomitant]
     Active Substance: CITALOPRAM HYDROBROMIDE
     Indication: PRODUCT USED FOR UNKNOWN INDICATION
     Dosage: UNK
     Route: 064
     Dates: start: 200511

REACTIONS (33)
  - Patent ductus arteriosus [Recovering/Resolving]
  - Exomphalos [Unknown]
  - Hyperbilirubinaemia [Unknown]
  - Respiratory acidosis [Unknown]
  - Tracheomalacia [Unknown]
  - Developmental delay [Unknown]
  - Ventricular septal defect [Unknown]
  - Pain [Unknown]
  - Bronchomalacia [Unknown]
  - Deafness [Unknown]
  - Anhedonia [Unknown]
  - Bronchopulmonary dysplasia [Unknown]
  - Laryngomalacia [Unknown]
  - Serratia infection [Unknown]
  - Foetal exposure during pregnancy [Unknown]
  - Disability [Unknown]
  - Persistent foetal circulation [Unknown]
  - Lung disorder [Unknown]
  - Right ventricular hypertrophy [Unknown]
  - Gastroschisis [Unknown]
  - Cardiac disorder [Unknown]
  - Atrial septal defect [Unknown]
  - Left ventricular dysfunction [Unknown]
  - Mental disorder [Unknown]
  - Deformity [Unknown]
  - Anxiety [Unknown]
  - Pneumonia klebsiella [Unknown]
  - Bacterial sepsis [Unknown]
  - Apnoea [Unknown]
  - Respiratory failure [Unknown]
  - Cardiac failure congestive [Unknown]
  - Oedema [Unknown]
  - Mechanical ventilation [Unknown]

NARRATIVE: CASE EVENT DATE: 20060207
